FAERS Safety Report 7535781-1 (Version None)
Quarter: 2011Q2

REPORT INFORMATION
  Report Type: 
  Country: None (occurrence: None)
  Receive Date: 20110609
  Receipt Date: 20110531
  Transmission Date: 20111010
  Serious: Yes (Other)
  Sender: FDA-Public Use
  Company Number: US-NAPPMUNDI-DEU-2011-0007368

PATIENT
  Age: 45 Year
  Sex: Male
  Weight: 70 kg

DRUGS (15)
  1. HYDROMORPHONE HCL [Suspect]
     Indication: RADICULAR PAIN
  2. OXYMORPHONE [Suspect]
     Indication: RADICULAR PAIN
  3. OXYMORPHONE [Suspect]
     Indication: BACK PAIN
     Route: 048
  4. HYDROMORPHONE HCL [Suspect]
     Indication: BACK PAIN
     Dosage: 32 MG, PRN
     Route: 048
  5. OXYCODONE HCL [Suspect]
     Indication: RADICULAR PAIN
  6. MORPHINE SULFATE [Suspect]
     Indication: RADICULAR PAIN
  7. OXYMORPHONE [Suspect]
     Indication: PAIN IN EXTREMITY
  8. MORPHINE SULFATE [Suspect]
     Indication: BACK PAIN
     Dosage: 60 MG, TID
     Route: 048
  9. MORPHINE SULFATE [Suspect]
     Indication: PAIN IN EXTREMITY
  10. OXYCODONE HCL [Suspect]
     Indication: PAIN IN EXTREMITY
  11. OXYCODONE HCL [Suspect]
     Indication: RADICULAR PAIN
  12. HYDROMORPHONE HCL [Suspect]
     Indication: PAIN IN EXTREMITY
  13. OXYCODONE HCL [Suspect]
     Indication: BACK PAIN
     Route: 048
  14. OXYCODONE HCL [Suspect]
     Indication: BACK PAIN
     Route: 048
  15. OXYCODONE HCL [Suspect]
     Indication: PAIN IN EXTREMITY

REACTIONS (8)
  - ERECTILE DYSFUNCTION [None]
  - LOSS OF LIBIDO [None]
  - FATIGUE [None]
  - HYPOGONADISM MALE [None]
  - HYPOTRICHOSIS [None]
  - DEPRESSION [None]
  - OSTEOPOROSIS [None]
  - HOT FLUSH [None]
